FAERS Safety Report 6246472-1 (Version None)
Quarter: 2009Q2

REPORT INFORMATION
  Report Type: 
  Country: None (occurrence: None)
  Receive Date: 20090626
  Receipt Date: 20090615
  Transmission Date: 20091009
  Serious: Yes (Death, Other)
  Sender: FDA-Public Use
  Company Number: FR-ROCHE-638227

PATIENT
  Age: 76 Year
  Sex: Male

DRUGS (5)
  1. MYCOPHENOLATE MOFETIL [Suspect]
     Route: 065
  2. RITUXIMAB [Suspect]
     Dosage: INFUSION
     Route: 065
  3. METHYLPREDNISOLONE [Concomitant]
  4. METHOTREXATE [Concomitant]
  5. AZATHIOPRINE [Concomitant]

REACTIONS (6)
  - EMPHYSEMATOUS CYSTITIS [None]
  - LUNG INFECTION [None]
  - POLYCHONDRITIS [None]
  - SEPSIS [None]
  - SEPTIC SHOCK [None]
  - SUBCUTANEOUS ABSCESS [None]
